FAERS Safety Report 6454172-8 (Version None)
Quarter: 2009Q4

REPORT INFORMATION
  Report Type: 
  Country: None (occurrence: None)
  Receive Date: 20091124
  Receipt Date: 20091116
  Transmission Date: 20100525
  Serious: Yes (Other)
  Sender: FDA-Public Use
  Company Number: US-JNJCH-2009030238

PATIENT
  Age: 61 Year
  Sex: Female
  Weight: 68 kg

DRUGS (2)
  1. SUDAFED PE COLD + COUGH CAPLETS [Suspect]
     Indication: COUGH
     Dosage: TEXT:2 TABLETS ONCE
     Route: 048
     Dates: start: 20091113, end: 20091113
  2. AIRBORNE [Suspect]
     Indication: DRUG USE FOR UNKNOWN INDICATION
     Dosage: TEXT:ONE TABLET ONCE
     Route: 048

REACTIONS (3)
  - HEADACHE [None]
  - HEART RATE DECREASED [None]
  - SYNCOPE [None]
